FAERS Safety Report 19841830 (Version 1)
Quarter: 2021Q3

REPORT INFORMATION
  Report Type: Spontaneous
  Country: ES (occurrence: ES)
  Receive Date: 20210915
  Receipt Date: 20210915
  Transmission Date: 20211014
  Serious: Yes (Hospitalization, Other)
  Sender: FDA-Public Use
  Company Number: ES-SA-2021SA301447

PATIENT
  Age: 80 Year
  Sex: Male

DRUGS (4)
  1. PITAVASTATIN. [Suspect]
     Active Substance: PITAVASTATIN CALCIUM
     Dosage: 1 DF, QD
     Route: 048
     Dates: start: 20201218
  2. CLOPIDOGREL BISULFATE. [Suspect]
     Active Substance: CLOPIDOGREL BISULFATE
     Dosage: 1 DF, QD
     Route: 048
     Dates: start: 20201210
  3. CLOMETIAZOL [Suspect]
     Active Substance: CLOMETHIAZOLE
     Dosage: 1 DF, TID
     Route: 048
     Dates: start: 20201210, end: 20210107
  4. QUETIAPINE FUMARATE. [Suspect]
     Active Substance: QUETIAPINE FUMARATE
     Dosage: 1 DF, QD
     Route: 048
     Dates: start: 20201218

REACTIONS (2)
  - Drug-induced liver injury [Recovered/Resolved]
  - Jaundice [Recovered/Resolved]

NARRATIVE: CASE EVENT DATE: 202101
